FAERS Safety Report 6986638-6 (Version None)
Quarter: 2010Q3

REPORT INFORMATION
  Report Type: 
  Country: None (occurrence: None)
  Receive Date: 20100915
  Receipt Date: 20090720
  Transmission Date: 20110219
  Serious: No
  Sender: FDA-Public Use
  Company Number: US-WYE-H10229909

PATIENT
  Sex: Female
  Weight: 85.81 kg

DRUGS (6)
  1. PRISTIQ [Suspect]
     Indication: DEPRESSION
     Route: 048
     Dates: start: 20090718
  2. ZOCOR [Concomitant]
  3. SITAGLIPTIN [Concomitant]
  4. GLIPIZIDE [Concomitant]
  5. VALSARTAN [Concomitant]
  6. METFORMIN [Concomitant]

REACTIONS (2)
  - DIARRHOEA [None]
  - NAUSEA [None]
